FAERS Safety Report 22840432 (Version 4)
Quarter: 2024Q1

REPORT INFORMATION
  Report Type: Spontaneous
  Country: CA (occurrence: CA)
  Receive Date: 20230819
  Receipt Date: 20240124
  Transmission Date: 20240409
  Serious: Yes (Other)
  Sender: FDA-Public Use
  Company Number: CA-CELLTRION INC.-2023CA016107

PATIENT

DRUGS (14)
  1. INFLECTRA [Suspect]
     Active Substance: INFLIXIMAB-DYYB
     Indication: Colitis ulcerative
     Dosage: 5 MG/KG, 0, 2, 6 WEEKS, THEN EVERY 8 WEEKS
     Route: 042
     Dates: start: 20230512
  2. INFLECTRA [Suspect]
     Active Substance: INFLIXIMAB-DYYB
     Dosage: 5 MG/KG, 0, 2, 6 WEEKS, THEN EVERY 8 WEEKS
     Route: 042
     Dates: start: 20230629
  3. INFLECTRA [Suspect]
     Active Substance: INFLIXIMAB-DYYB
     Dosage: 920 MG, (10MG/KG), 6 WEEKS 1 DAY (PRESCRIBED EVERY 4 WEEKS)
     Route: 042
     Dates: start: 20230811
  4. INFLECTRA [Suspect]
     Active Substance: INFLIXIMAB-DYYB
     Dosage: 950 MG, EVERY 4 WEEKS
     Route: 042
     Dates: start: 20230908
  5. INFLECTRA [Suspect]
     Active Substance: INFLIXIMAB-DYYB
     Dosage: 950 MG, (10 MG/KG), EVERY 4 WEEKS
     Route: 042
     Dates: start: 20231003
  6. INFLECTRA [Suspect]
     Active Substance: INFLIXIMAB-DYYB
     Dosage: 950 MG, (10 MG/KG), EVERY 4 WEEKS
     Route: 042
     Dates: start: 20231003
  7. INFLECTRA [Suspect]
     Active Substance: INFLIXIMAB-DYYB
     Dosage: 1010 MG (10 MG/KG), EVERY 4 WEEKS
     Route: 042
     Dates: start: 20231031
  8. INFLECTRA [Suspect]
     Active Substance: INFLIXIMAB-DYYB
     Dosage: 1010 MG (10 MG/KG), EVERY 4 WEEKS
     Route: 042
     Dates: start: 20231222
  9. INFLECTRA [Suspect]
     Active Substance: INFLIXIMAB-DYYB
     Dosage: 1010 MG (10 MG/KG), EVERY 4 WEEKS
     Route: 042
     Dates: start: 20231222
  10. INFLECTRA [Suspect]
     Active Substance: INFLIXIMAB-DYYB
     Dosage: 1010 MG (10 MG/KG), EVERY 4 WEEKS
     Route: 042
     Dates: start: 20231222
  11. INFLECTRA [Suspect]
     Active Substance: INFLIXIMAB-DYYB
     Dosage: 1000 MG (10 MG/KG), EVERY 4 WEEKS
     Route: 042
     Dates: start: 20240116
  12. MESALAMINE [Concomitant]
     Active Substance: MESALAMINE
     Dosage: UNK
  13. PENTASA [Concomitant]
     Active Substance: MESALAMINE
     Dosage: UNK
  14. PREDNISONE [Concomitant]
     Active Substance: PREDNISONE
     Dosage: UNK

REACTIONS (3)
  - Condition aggravated [Recovering/Resolving]
  - Off label use [Unknown]
  - Inappropriate schedule of product administration [Unknown]

NARRATIVE: CASE EVENT DATE: 20230811
